FAERS Safety Report 24860642 (Version 1)
Quarter: 2025Q1

REPORT INFORMATION
  Report Type: Spontaneous
  Country: BE (occurrence: BE)
  Receive Date: 20250120
  Receipt Date: 20250120
  Transmission Date: 20250408
  Serious: Yes (Death, Life-Threatening, Hospitalization)
  Sender: BOEHRINGER INGELHEIM
  Company Number: None

PATIENT
  Age: 65 Year
  Sex: Male
  Weight: 68 kg

DRUGS (24)
  1. JARDIANCE [Suspect]
     Active Substance: EMPAGLIFLOZIN
     Indication: Type 2 diabetes mellitus
     Dosage: 1/DAY
     Dates: start: 20240814, end: 20241015
  2. ABILIFY [Concomitant]
     Active Substance: ARIPIPRAZOLE
     Indication: Product used for unknown indication
  3. Arava 10 MG [Concomitant]
     Indication: Product used for unknown indication
  4. ASPIRIN [Concomitant]
     Active Substance: ASPIRIN
     Indication: Product used for unknown indication
  5. BEFACT FORTE [Concomitant]
     Indication: Product used for unknown indication
  6. Betmiga 25 MG [Concomitant]
     Indication: Product used for unknown indication
  7. BISOPROLOL MYLAN 10 MG [Concomitant]
     Indication: Product used for unknown indication
  8. DAFALGAN [Concomitant]
     Active Substance: ACETAMINOPHEN
     Indication: Product used for unknown indication
  9. D-vital forte orange 1000 mg/880 IE kauwtabletten [Concomitant]
     Indication: Product used for unknown indication
  10. ENTRESTO 50 MG [Concomitant]
     Indication: Product used for unknown indication
  11. Foliumzuur 5 MG [Concomitant]
     Indication: Product used for unknown indication
  12. IMODIUM 2 MG [Concomitant]
     Indication: Product used for unknown indication
  13. LEDERTREXATE 15 MG [Concomitant]
     Indication: Product used for unknown indication
  14. LIPITOR [Concomitant]
     Active Substance: ATORVASTATIN CALCIUM
     Indication: Product used for unknown indication
  15. LORMETAZEPAM 1 mg [Concomitant]
     Indication: Product used for unknown indication
  16. METFORMINE MYLAN 500 MG [Concomitant]
     Indication: Product used for unknown indication
  17. MONURIL 3 G GRANULES [Concomitant]
     Indication: Product used for unknown indication
  18. MOVICOL [Concomitant]
     Active Substance: POLYETHYLENE GLYCOL 3350\POTASSIUM CHLORIDE\SODIUM BICARBONATE\SODIUM CHLORIDE
     Indication: Product used for unknown indication
  19. NESTROLAN [Concomitant]
     Indication: Product used for unknown indication
  20. Ozempic 0.25 mg solution for injection in pre-filled pen [Concomitant]
     Indication: Product used for unknown indication
  21. Pantoprazole Teva 40 MG [Concomitant]
     Indication: Product used for unknown indication
  22. SERLAIN 50 MG [Concomitant]
     Indication: Product used for unknown indication
  23. SPIRONOLACTONE EG 25 MG [Concomitant]
     Indication: Product used for unknown indication
  24. TAMSULOSIN HYDROCHLORIDE [Concomitant]
     Active Substance: TAMSULOSIN HYDROCHLORIDE
     Indication: Product used for unknown indication

REACTIONS (3)
  - Urinary tract candidiasis [Fatal]
  - Enterococcal infection [Fatal]
  - Cystitis [Fatal]

NARRATIVE: CASE EVENT DATE: 20241015
